FAERS Safety Report 19127425 (Version 2)
Quarter: 2021Q2

REPORT INFORMATION
  Report Type: Spontaneous
  Country: US (occurrence: US)
  Receive Date: 20210413
  Receipt Date: 20210416
  Transmission Date: 20210717
  Serious: Yes (Other)
  Sender: FDA-Public Use
  Company Number: US-RECKITT BENCKISER HEALTHCARE INT LIMITED-RB-85986-2021

PATIENT
  Age: 54 Year
  Sex: Female

DRUGS (1)
  1. CLEARASIL RAPID RESCUE SPOT TREATMENT (SALICYLIC ACID) [Suspect]
     Active Substance: SALICYLIC ACID
     Indication: ACNE
     Dosage: UNK, BID
     Route: 061
     Dates: start: 20210401, end: 20210401

REACTIONS (4)
  - Burning sensation [Not Recovered/Not Resolved]
  - Pruritus [Recovering/Resolving]
  - Blister [Not Recovered/Not Resolved]
  - Erythema [Recovering/Resolving]

NARRATIVE: CASE EVENT DATE: 20210401
